FAERS Safety Report 8348974-0 (Version None)
Quarter: 2012Q2

REPORT INFORMATION
  Report Type: 
  Country: None (occurrence: None)
  Receive Date: 20120508
  Receipt Date: 20120426
  Transmission Date: 20120825
  Serious: Yes (Other)
  Sender: FDA-Public Use
  Company Number: SG-GDP-12413633

PATIENT
  Age: 54 Year

DRUGS (2)
  1. TRETINOIN [Suspect]
     Indication: CHLOASMA
     Dosage: TOPICAL
     Route: 061
  2. TRI-LUMA [Suspect]
     Indication: CHLOASMA
     Dosage: TOPICAL
     Route: 061

REACTIONS (1)
  - OCHRONOSIS [None]
